FAERS Safety Report 4919109-9 (Version None)
Quarter: 2006Q1

REPORT INFORMATION
  Report Type: 
  Country: None (occurrence: None)
  Receive Date: 20060216
  Receipt Date: 20060202
  Transmission Date: 20060701
  Serious: Yes (Other)
  Sender: FDA-Public Use
  Company Number: 2006-138108-NL

PATIENT
  Age: 32 Year
  Sex: Female
  Weight: 47 kg

DRUGS (8)
  1. CHORIONIC GONADOTROPIN [Suspect]
     Indication: OVULATION INDUCTION
     Dosage: 10000 IU DAILY
  2. PROGESTERONE [Suspect]
     Indication: OVARIAN DISORDER
     Dosage: 200 MG DAILY VAGINAL
     Route: 067
  3. ORAL CONTRACEPTIVE PILLS [Suspect]
     Indication: OVARIAN DISORDER
  4. LEUPROLIDE ACETATE                               (USA) [Suspect]
     Indication: OVARIAN DISORDER
     Dosage: 0.5 MG DAILY, 11 DAYS IN TOTAL FOR 0,5 AND 0,25 MG
  5. LEUPROLIDE ACETATE                                 (USA) [Suspect]
     Indication: OVARIAN DISORDER
     Dosage: 0.25 MG DAILY
  6. FSH                          (GONAL-F, USA) [Suspect]
     Indication: OVARIAN DISORDER
     Dosage: 75 IU DAILY
  7. NEO-PERGONAL [Suspect]
     Indication: OVARIAN DISORDER
     Dosage: 75 IU DAILY
  8. NEO-PERGONAL [Suspect]
     Dosage: 37.5 IU DAILY

REACTIONS (7)
  - ABDOMINAL PAIN [None]
  - AXILLARY VEIN THROMBOSIS [None]
  - BLOOD SODIUM DECREASED [None]
  - DYSPNOEA [None]
  - LOCALISED OEDEMA [None]
  - NECK PAIN [None]
  - WEIGHT INCREASED [None]
